FAERS Safety Report 7512145-8 (Version None)
Quarter: 2011Q2

REPORT INFORMATION
  Report Type: 
  Country: None (occurrence: None)
  Receive Date: 20110520
  Receipt Date: 20110511
  Transmission Date: 20111010
  Serious: Yes (Hospitalization, Other)
  Sender: FDA-Public Use
  Company Number: 2010US005012

PATIENT
  Age: 68 Year
  Sex: Male
  Weight: 55 kg

DRUGS (4)
  1. MYFORTIC [Concomitant]
  2. PREDNISONE [Concomitant]
  3. PROGRAF [Suspect]
     Indication: RENAL TRANSPLANT
     Dosage: 8 MG, BID, 8 MG, UID/QD,ORAL
     Route: 048
     Dates: start: 20100410
  4. PROGRAF [Suspect]
     Indication: RENAL TRANSPLANT
     Dosage: 8 MG, BID, 8 MG, UID/QD,ORAL
     Route: 048
     Dates: start: 20100410

REACTIONS (10)
  - KLEBSIELLA TEST POSITIVE [None]
  - PROSTATIC SPECIFIC ANTIGEN INCREASED [None]
  - INFECTION SUSCEPTIBILITY INCREASED [None]
  - FOCAL SEGMENTAL GLOMERULOSCLEROSIS [None]
  - RENAL FAILURE [None]
  - HAEMODIALYSIS [None]
  - PROSTATITIS [None]
  - KIDNEY FIBROSIS [None]
  - RENAL TUBULAR ATROPHY [None]
  - BACTERIAL PYELONEPHRITIS [None]
